FAERS Safety Report 9333014 (Version 2)
Quarter: 2013Q3

REPORT INFORMATION
  Report Type: Spontaneous
  Country: US (occurrence: US)
  Receive Date: 20130606
  Receipt Date: 20130808
  Transmission Date: 20140515
  Serious: Yes (Other)
  Sender: FDA-Public Use
  Company Number: US-PFIZER INC-2013171650

PATIENT
  Age: 75 Year
  Sex: Male

DRUGS (5)
  1. ZOLOFT [Suspect]
     Indication: DEPRESSION
     Dosage: 50 MG, DAILY
     Dates: start: 201205, end: 201304
  2. ZOLOFT [Suspect]
     Dosage: 75 MG, DAILY
     Dates: start: 201304, end: 201304
  3. EFFEXOR XR [Suspect]
     Indication: DEPRESSION
     Dosage: 150 MG, DAILY
     Dates: start: 2012, end: 201304
  4. METOPROLOL [Concomitant]
     Indication: HYPERTENSION
     Dosage: UNK,2X/DAY
     Dates: start: 2013
  5. CRESTOR [Concomitant]
     Indication: CARDIOVASCULAR DISORDER
     Dosage: 20 MG, DAILY

REACTIONS (1)
  - Depression [Not Recovered/Not Resolved]
